FAERS Safety Report 16327371 (Version 2)
Quarter: 2019Q2

REPORT INFORMATION
  Report Type: Spontaneous
  Country: GB (occurrence: GB)
  Receive Date: 20190517
  Receipt Date: 20190523
  Transmission Date: 20190711
  Serious: Yes (Death, Other)
  Sender: FDA-Public Use
  Company Number: GB-MYLANLABS-2019M1046981

PATIENT
  Age: 68 Year
  Sex: Male

DRUGS (2)
  1. VORICONAZOLE. [Suspect]
     Active Substance: VORICONAZOLE
     Indication: ASPERGILLUS INFECTION
     Dosage: UNK
  2. TRANEXAMIC ACID. [Concomitant]
     Active Substance: TRANEXAMIC ACID
     Indication: HAEMOPTYSIS

REACTIONS (10)
  - Pneumonia [Unknown]
  - Coccidioidomycosis [Unknown]
  - Chronic pulmonary histoplasmosis [Unknown]
  - Paracoccidioides infection [Unknown]
  - Mycobacterial infection [Unknown]
  - Pulmonary infarction [Unknown]
  - Lung neoplasm malignant [Unknown]
  - Pulmonary vasculitis [Unknown]
  - Sepsis [Fatal]
  - Drug ineffective [Fatal]
